FAERS Safety Report 17074274 (Version 1)
Quarter: 2019Q4

REPORT INFORMATION
  Report Type: Spontaneous
  Country: IN (occurrence: IN)
  Receive Date: 20191126
  Receipt Date: 20191126
  Transmission Date: 20200122
  Serious: Yes (Other)
  Sender: FDA-Public Use
  Company Number: IN-ACCORD-162256

PATIENT
  Age: 57 Year
  Sex: Male

DRUGS (7)
  1. CLOPIDOGREL [Suspect]
     Active Substance: CLOPIDOGREL BISULFATE
     Indication: ANGINA UNSTABLE
  2. ISOSORBIDE. [Concomitant]
     Active Substance: ISOSORBIDE
     Indication: CHEST DISCOMFORT
  3. RANITIDINE. [Concomitant]
     Active Substance: RANITIDINE
  4. HEPARIN [Suspect]
     Active Substance: HEPARIN SODIUM
     Indication: ANGINA UNSTABLE
     Dosage: CONTINUED UNTIL THE 5TH DAY OF HOSPITALIZATION
     Route: 042
  5. ATORVASTATIN [Concomitant]
     Active Substance: ATORVASTATIN
     Dosage: (10 MG )
  6. ACETYLSALICYLIC ACID [Suspect]
     Active Substance: ASPIRIN
     Indication: ANGINA UNSTABLE
  7. LOSARTAN. [Concomitant]
     Active Substance: LOSARTAN
     Indication: HYPERTENSION

REACTIONS (1)
  - Haematochezia [Unknown]
